FAERS Safety Report 4761487-8 (Version None)
Quarter: 2005Q3

REPORT INFORMATION
  Report Type: 
  Country: None (occurrence: None)
  Receive Date: 20050906
  Receipt Date: 20050830
  Transmission Date: 20060218
  Serious: Yes (Death, Hospitalization)
  Sender: FDA-Public Use
  Company Number: US-GLAXOSMITHKLINE-A0572860A

PATIENT
  Age: 46 Year
  Sex: Female
  Weight: 52.7 kg

DRUGS (2)
  1. TOPOTECAN [Suspect]
     Indication: CERVIX CARCINOMA RECURRENT
     Dosage: .75MGM2 CYCLIC
     Route: 042
     Dates: start: 20010809
  2. CISPLATIN [Suspect]
     Indication: CERVIX CARCINOMA RECURRENT
     Dosage: 50MGM2 CYCLIC
     Route: 042
     Dates: start: 20010809

REACTIONS (9)
  - ANAEMIA [None]
  - CERVIX CARCINOMA RECURRENT [None]
  - DEHYDRATION [None]
  - DEPRESSED LEVEL OF CONSCIOUSNESS [None]
  - MENTAL STATUS CHANGES [None]
  - MOANING [None]
  - PANCYTOPENIA [None]
  - TACHYCARDIA [None]
  - VOMITING [None]
